FAERS Safety Report 5642105-3 (Version None)
Quarter: 2008Q1

REPORT INFORMATION
  Report Type: 
  Country: None (occurrence: None)
  Receive Date: 20080131
  Receipt Date: 20071130
  Transmission Date: 20080703
  Serious: No
  Sender: FDA-Public Use
  Company Number: US200712000387

PATIENT
  Age: 62 Year
  Sex: Male
  Weight: 133.3 kg

DRUGS (2)
  1. BYETTA [Suspect]
     Indication: DIABETES MELLITUS INADEQUATE CONTROL
     Dosage: 5 UG, 2/D, SUBCUTANEOUS ; 10 UG, 2/D, SUBCUTANEOUS
     Route: 058
     Dates: end: 20070607
  2. BYETTA [Suspect]
     Indication: DIABETES MELLITUS INADEQUATE CONTROL
     Dosage: 5 UG, 2/D, SUBCUTANEOUS ; 10 UG, 2/D, SUBCUTANEOUS
     Route: 058
     Dates: start: 20070608, end: 20070611

REACTIONS (4)
  - ERYTHEMA [None]
  - RASH [None]
  - RASH PUSTULAR [None]
  - ROSACEA [None]
